FAERS Safety Report 5811177-5 (Version None)
Quarter: 2008Q3

REPORT INFORMATION
  Report Type: 
  Country: None (occurrence: None)
  Receive Date: 20080710
  Receipt Date: 20080623
  Transmission Date: 20090109
  Serious: Yes (Hospitalization, Other)
  Sender: FDA-Public Use
  Company Number: 2008S1008983

PATIENT
  Age: 50 Year
  Sex: Male

DRUGS (9)
  1. OLANZAPINE [Suspect]
     Indication: SCHIZOPHRENIA, PARANOID TYPE
     Dosage: 25 MG; NULL_1_DAY, 20 MG; NULL_1_DAY, 25 MG; NULL_1_DAY
  2. GLICLAZIDE (GLICLAZIDE) [Suspect]
     Indication: TYPE 2 DIABETES MELLITUS
     Dosage: 30 MG; NULL_1_DAY ORAL, 30 MG; ORAL; NULL_1_DAY
     Route: 048
  3. METFORMIN HCL [Suspect]
     Indication: TYPE 2 DIABETES MELLITUS
     Dosage: 1 GM; TWICE A DAY ORAL, 500 MG; ORAL; TWICE A DAY, 1 GM; ORAL; TWICE A DAY
     Route: 048
  4. ARIPIPRAZOLE [Suspect]
     Indication: SCHIZOPHRENIA, PARANOID TYPE
     Dosage: 15 MG;, 20 MG; NULL_1_DAY, 15 MG;
  5. RISPERDAL [Suspect]
     Indication: SCHIZOPHRENIA, PARANOID TYPE
     Dosage: 6 MG; NULL_1_DAY ORAL, 6 MG; ORAL; NULL_1_DAY
     Route: 048
  6. ANTIPSYCHOTICS (ANTIPSYCHOTICS) [Concomitant]
  7. SIMVASTATIN [Concomitant]
  8. AMLODIPINE [Concomitant]
  9. PERINDOPRIL ERBUMINE [Concomitant]

REACTIONS (8)
  - DRUG INTERACTION [None]
  - DRUG WITHDRAWAL SYNDROME [None]
  - HYPOGLYCAEMIA [None]
  - MENTAL DISORDER [None]
  - TREATMENT NONCOMPLIANCE [None]
  - TYPE 2 DIABETES MELLITUS [None]
  - URINARY INCONTINENCE [None]
  - WEIGHT DECREASED [None]
